FAERS Safety Report 23014934 (Version 1)
Quarter: 2023Q4

REPORT INFORMATION
  Report Type: Spontaneous
  Country: CN (occurrence: CN)
  Receive Date: 20231002
  Receipt Date: 20231002
  Transmission Date: 20240110
  Serious: Yes (Death, Other)
  Sender: FDA-Public Use
  Company Number: CN-PFIZER INC-PV202300161909

PATIENT
  Age: 5 Year
  Sex: Male

DRUGS (7)
  1. SIROLIMUS [Suspect]
     Active Substance: SIROLIMUS
     Indication: Immunosuppression
     Dosage: UNK
     Dates: start: 2020
  2. METHYLPREDNISOLONE SODIUM SUCCINATE [Suspect]
     Active Substance: METHYLPREDNISOLONE SODIUM SUCCINATE
     Indication: Bone marrow failure
     Dosage: UNK, INFUSION
     Route: 042
     Dates: start: 202007
  3. MYCOPHENOLATE MOFETIL [Suspect]
     Active Substance: MYCOPHENOLATE MOFETIL
     Indication: Immunosuppression
     Dosage: UNK
     Dates: start: 2020
  4. CYCLOSPORINE [Suspect]
     Active Substance: CYCLOSPORINE
     Indication: Immunosuppression
     Dosage: UNK
     Dates: start: 2020
  5. BUDESONIDE [Concomitant]
     Active Substance: BUDESONIDE
     Indication: Gastrointestinal disorder
     Dosage: UNK
     Dates: start: 2020
  6. THALIDOMIDE [Concomitant]
     Active Substance: THALIDOMIDE
     Indication: Gastrointestinal disorder
     Dosage: UNK
     Dates: start: 2020
  7. VANCOMYCIN [Concomitant]
     Active Substance: VANCOMYCIN
     Indication: Dysbiosis
     Dosage: UNK
     Route: 048
     Dates: start: 2020

REACTIONS (3)
  - BK virus infection [Fatal]
  - Pneumonia [Fatal]
  - Off label use [Unknown]

NARRATIVE: CASE EVENT DATE: 20200101
